FAERS Safety Report 5409611-8 (Version None)
Quarter: 2007Q3

REPORT INFORMATION
  Report Type: 
  Country: None (occurrence: None)
  Receive Date: 20070807
  Receipt Date: 20070807
  Transmission Date: 20080115
  Serious: Yes (Hospitalization)
  Sender: FDA-Public Use
  Company Number: None

PATIENT
  Age: 69 Year
  Sex: Male

DRUGS (10)
  1. RISPERDAL [Suspect]
     Indication: SCHIZOPHRENIA, PARANOID TYPE
     Dosage: 2 MG DAILY PO
     Route: 048
  2. DILTIAZEM [Concomitant]
  3. HALDOL [Concomitant]
  4. METFORMIN HCL [Concomitant]
  5. INSULIN SLIDING SCALE [Concomitant]
  6. MORPHINE [Concomitant]
  7. VICODIN [Concomitant]
  8. TIGAN [Concomitant]
  9. ZANTAC 150 [Concomitant]
  10. COLACE [Concomitant]

REACTIONS (1)
  - PARKINSONISM [None]
